FAERS Safety Report 10601014 (Version 3)
Quarter: 2015Q3

REPORT INFORMATION
  Report Type: Report from Study
  Country: AU (occurrence: AU)
  Receive Date: 20141124
  Receipt Date: 20150807
  Transmission Date: 20151125
  Serious: Yes (Hospitalization, Other)
  Sender: FDA-Public Use
  Company Number: PHHY2014AU147571

PATIENT
  Age: 68 Year
  Sex: Male

DRUGS (1)
  1. AMN107 [Suspect]
     Active Substance: NILOTINIB
     Indication: CHRONIC MYELOID LEUKAEMIA
     Dosage: 400 MG, BID
     Route: 048
     Dates: start: 20100909, end: 20140904

REACTIONS (3)
  - Angiopathy [Unknown]
  - Acute myocardial infarction [Recovered/Resolved with Sequelae]
  - Gene mutation identification test positive [Unknown]

NARRATIVE: CASE EVENT DATE: 201407
